FAERS Safety Report 9918909 (Version 2)
Quarter: 2014Q2

REPORT INFORMATION
  Report Type: Spontaneous
  Country: US (occurrence: US)
  Receive Date: 20140224
  Receipt Date: 20140423
  Transmission Date: 20141212
  Serious: No
  Sender: FDA-Public Use
  Company Number: US-PFIZER INC-2014048931

PATIENT
  Age: 59 Year
  Sex: Male

DRUGS (4)
  1. XALKORI [Suspect]
     Indication: LUNG NEOPLASM MALIGNANT
     Dosage: 250 MG, 2X/DAY
     Route: 048
     Dates: start: 20140131
  2. COMPAZINE [Concomitant]
     Indication: NAUSEA
     Dosage: 10 MG, Q6 HOURS AS NEEDED (PRN)
     Route: 048
     Dates: start: 20140206
  3. ZOFRAN [Concomitant]
     Indication: NAUSEA
     Dosage: 8 MG, Q8 HOURS AS NEEDED (PRN)
     Route: 048
     Dates: start: 20140218
  4. OMEPRAZOLE [Concomitant]
     Indication: GASTROOESOPHAGEAL REFLUX DISEASE
     Dosage: 20 MG, 2X/DAY
     Route: 048

REACTIONS (4)
  - Photopsia [Recovered/Resolved with Sequelae]
  - Fatigue [Recovered/Resolved with Sequelae]
  - Nausea [Recovered/Resolved with Sequelae]
  - Sensory disturbance [Recovered/Resolved with Sequelae]
